FAERS Safety Report 7273329-X (Version None)
Quarter: 2011Q1

REPORT INFORMATION
  Report Type: 
  Country: None (occurrence: None)
  Receive Date: 20110203
  Receipt Date: 20100802
  Transmission Date: 20110831
  Serious: No
  Sender: FDA-Public Use
  Company Number: US-ABBOTT-10P-163-0662216-00

PATIENT
  Sex: Male
  Weight: 78.088 kg

DRUGS (3)
  1. SYNTHROID [Suspect]
     Indication: THYROID CANCER
     Dates: start: 19940101
  2. GEMFIBROZIL [Suspect]
     Indication: BLOOD TRIGLYCERIDES INCREASED
     Dates: start: 20100601
  3. SYNTHROID [Suspect]
     Indication: HYPOTHYROIDISM

REACTIONS (1)
  - DIARRHOEA [None]
